FAERS Safety Report 24399234 (Version 1)
Quarter: 2024Q4

REPORT INFORMATION
  Report Type: Spontaneous
  Country: ES (occurrence: ES)
  Receive Date: 20241004
  Receipt Date: 20241004
  Transmission Date: 20250115
  Serious: Yes (Life-Threatening, Hospitalization)
  Sender: DAIICHI
  Company Number: None

PATIENT
  Age: 94 Year
  Sex: Male
  Weight: 80 kg

DRUGS (2)
  1. EDOXABAN TOSYLATE [Suspect]
     Active Substance: EDOXABAN TOSYLATE
     Indication: Atrial flutter
     Dosage: 60 MG, QD
     Route: 048
     Dates: start: 20191220, end: 20240516
  2. EDOXABAN TOSYLATE [Suspect]
     Active Substance: EDOXABAN TOSYLATE
     Dosage: 30 MG, QD
     Route: 048
     Dates: start: 20240517, end: 20240902

REACTIONS (4)
  - Haemodynamic instability [Recovered/Resolved]
  - Gastric ulcer haemorrhage [Recovered/Resolved]
  - Anaemia [Recovering/Resolving]
  - Off label use [Recovered/Resolved]

NARRATIVE: CASE EVENT DATE: 20191220
